FAERS Safety Report 18377696 (Version 1)
Quarter: 2020Q4

REPORT INFORMATION
  Report Type: Spontaneous
  Country: CA (occurrence: CA)
  Receive Date: 20201013
  Receipt Date: 20201013
  Transmission Date: 20210114
  Serious: Yes (Hospitalization)
  Sender: FDA-Public Use
  Company Number: CA-PFIZER INC-2020392300

PATIENT
  Age: 6 Month
  Sex: Female

DRUGS (1)
  1. SERTRALINE HCL [Suspect]
     Active Substance: SERTRALINE HYDROCHLORIDE
     Dosage: 75 MG, 1X/DAY
     Route: 063

REACTIONS (5)
  - Haematochezia [Unknown]
  - Mucous stools [Unknown]
  - Exposure via breast milk [Unknown]
  - Colitis [Unknown]
  - Food allergy [Unknown]
